FAERS Safety Report 6833903-9 (Version None)
Quarter: 2010Q3

REPORT INFORMATION
  Report Type: 
  Country: None (occurrence: None)
  Receive Date: 20100712
  Receipt Date: 20070404
  Transmission Date: 20110219
  Serious: No
  Sender: FDA-Public Use
  Company Number: US-PFIZER INC-2007027856

PATIENT
  Sex: Female
  Weight: 54.43 kg

DRUGS (6)
  1. CHANTIX [Suspect]
     Indication: SMOKING CESSATION THERAPY
     Dates: start: 20070325
  2. CALCIUM [Concomitant]
  3. ACETYLSALICYLIC ACID [Concomitant]
  4. SYNTHROID [Concomitant]
  5. XANAX [Concomitant]
  6. IMITREX [Concomitant]

REACTIONS (2)
  - MIDDLE INSOMNIA [None]
  - NAUSEA [None]
